FAERS Safety Report 7244432-5 (Version None)
Quarter: 2011Q1

REPORT INFORMATION
  Report Type: 
  Country: None (occurrence: None)
  Receive Date: 20110125
  Receipt Date: 20110114
  Transmission Date: 20110831
  Serious: Yes (Hospitalization)
  Sender: FDA-Public Use
  Company Number: PHRM2006FR02334

PATIENT
  Sex: Male
  Weight: 72 kg

DRUGS (6)
  1. ARANESP [Suspect]
     Indication: RENAL FAILURE
  2. ACEBUTOLOL [Suspect]
  3. PREDNISONE [Concomitant]
     Dosage: 10 MG PER DAY
  4. ZOMETA [Suspect]
     Indication: METASTASES TO BONE
     Dosage: 4 MG, QMO
     Route: 042
     Dates: start: 20021224, end: 20050715
  5. RAMIPRIL [Suspect]
  6. TRIATEC [Concomitant]
     Dates: start: 20060101

REACTIONS (21)
  - OSTEONECROSIS OF JAW [None]
  - RENAL FAILURE [None]
  - FACE OEDEMA [None]
  - HYPERKALAEMIA [None]
  - GENERAL PHYSICAL HEALTH DETERIORATION [None]
  - HYPOTENSION [None]
  - TOOTH ABSCESS [None]
  - MOUTH ULCERATION [None]
  - C-REACTIVE PROTEIN INCREASED [None]
  - INCORRECT DRUG ADMINISTRATION DURATION [None]
  - DENTURE WEARER [None]
  - BONE SWELLING [None]
  - BLOOD CREATININE INCREASED [None]
  - CREATININE RENAL CLEARANCE DECREASED [None]
  - PROTEINURIA [None]
  - NEPHROGENIC ANAEMIA [None]
  - MALAISE [None]
  - OSTEITIS [None]
  - INFLAMMATION [None]
  - PYREXIA [None]
  - LYMPHADENOPATHY [None]
